FAERS Safety Report 7197692-3 (Version None)
Quarter: 2010Q4

REPORT INFORMATION
  Report Type: 
  Country: None (occurrence: None)
  Receive Date: 20101227
  Receipt Date: 20101220
  Transmission Date: 20110411
  Serious: Yes (Other)
  Sender: FDA-Public Use
  Company Number: FR-B.I. PHARMACEUTICALS,INC./RIDGEFIELD-2010-FF-01043FF

PATIENT
  Sex: Female
  Weight: 71 kg

DRUGS (8)
  1. PRADAXA [Suspect]
     Indication: THROMBOSIS PROPHYLAXIS
     Dosage: 220 MG
     Route: 048
     Dates: start: 20101123, end: 20101205
  2. XANAX [Concomitant]
  3. DAFALGAN [Concomitant]
  4. TOPALGIC [Concomitant]
  5. PLAVIX [Concomitant]
  6. DEROXAT [Concomitant]
  7. FIXICAL [Concomitant]
  8. CONDROSULF [Concomitant]

REACTIONS (1)
  - PHLEBITIS DEEP [None]
